FAERS Safety Report 6908520-2 (Version None)
Quarter: 2010Q3

REPORT INFORMATION
  Report Type: 
  Country: None (occurrence: None)
  Receive Date: 20100805
  Receipt Date: 20100723
  Transmission Date: 20110219
  Serious: Yes (Death, Hospitalization)
  Sender: FDA-Public Use
  Company Number: US-ELI_LILLY_AND_COMPANY-US201006004710

PATIENT
  Sex: Male

DRUGS (13)
  1. ZYPREXA [Suspect]
     Indication: ANXIETY
     Dosage: 5 MG, 2/D
     Dates: end: 20100605
  2. DUONEB [Concomitant]
     Dosage: UNK, 4/D
  3. ALLOPURINOL [Concomitant]
     Dosage: 150 MG, DAILY (1/D)
  4. AMLODIPINE [Concomitant]
     Dosage: 5 MG, DAILY (1/D)
  5. PERSANTINE [Concomitant]
     Dosage: 75 MG, UNK
  6. COLACE [Concomitant]
     Dosage: 100 MG, 2/D
  7. LASIX [Concomitant]
     Dosage: 20 MEQ, DAILY (1/D)
  8. LISINOPRIL [Concomitant]
     Dosage: 20 MG, DAILY (1/D)
  9. NAMENDA [Concomitant]
     Dosage: 10 MG, DAILY (1/D)
  10. METOPROLOL [Concomitant]
     Dosage: 50 MG, 2/D
  11. OMEPRAZOLE [Concomitant]
     Dosage: 20 MG, DAILY (1/D)
  12. SIMVASTATIN [Concomitant]
  13. SPIRIVA [Concomitant]
     Dosage: 18 MG, DAILY (1/D)

REACTIONS (6)
  - ASTHENIA [None]
  - COLITIS ISCHAEMIC [None]
  - INTESTINAL PERFORATION [None]
  - OFF LABEL USE [None]
  - POST PROCEDURAL COMPLICATION [None]
  - SEPSIS [None]
